FAERS Safety Report 5330646-8 (Version None)
Quarter: 2007Q2

REPORT INFORMATION
  Report Type: 
  Country: None (occurrence: None)
  Receive Date: 20070516
  Receipt Date: 20070504
  Transmission Date: 20071010
  Serious: Yes (Other)
  Sender: FDA-Public Use
  Company Number: B0470694A

PATIENT
  Sex: Male

DRUGS (1)
  1. BUPROPION HCL [Suspect]

REACTIONS (8)
  - DIZZINESS [None]
  - DYSPNOEA [None]
  - INTENTIONAL OVERDOSE [None]
  - PALPITATIONS [None]
  - PANIC ATTACK [None]
  - PNEUMOTHORAX [None]
  - SKIN LACERATION [None]
  - SUICIDE ATTEMPT [None]
